FAERS Safety Report 5701430-8 (Version None)
Quarter: 2008Q2

REPORT INFORMATION
  Report Type: 
  Country: None (occurrence: None)
  Receive Date: 20080410
  Receipt Date: 20080404
  Transmission Date: 20081010
  Serious: Yes (Other)
  Sender: FDA-Public Use
  Company Number: JP-MERCK-0711USA03536

PATIENT
  Age: 31 Year
  Sex: Female
  Weight: 25 kg

DRUGS (2)
  1. PEPCID [Suspect]
     Route: 048
     Dates: end: 20071026
  2. [THERAPY UNSPECIFIED] [Concomitant]
     Route: 065

REACTIONS (1)
  - LIVER DISORDER [None]
